FAERS Safety Report 14754099 (Version 1)
Quarter: 2018Q2

REPORT INFORMATION
  Report Type: Spontaneous
  Country: US (occurrence: US)
  Receive Date: 20180406
  Receipt Date: 20180406
  Transmission Date: 20180711
  Serious: No
  Sender: FDA-Public Use
  Company Number: None

PATIENT
  Age: 41 Year
  Sex: Female
  Weight: 65.25 kg

DRUGS (8)
  1. MIRENA [Suspect]
     Active Substance: LEVONORGESTREL
     Indication: MENSTRUAL DISORDER
     Route: 067
     Dates: start: 20171213, end: 20180313
  2. MULTIVITAMIN [Concomitant]
     Active Substance: VITAMINS
  3. NAPROXEN. [Concomitant]
     Active Substance: NAPROXEN
  4. WELLBUTRIN XL [Concomitant]
     Active Substance: BUPROPION HYDROCHLORIDE
  5. OMEGA3S [Concomitant]
  6. ADDERALL [Concomitant]
     Active Substance: AMPHETAMINE ASPARTATE\AMPHETAMINE SULFATE\DEXTROAMPHETAMINE SACCHARATE\DEXTROAMPHETAMINE SULFATE
  7. CLOBETASOL [Concomitant]
     Active Substance: CLOBETASOL
  8. IBUPROFEN. [Concomitant]
     Active Substance: IBUPROFEN

REACTIONS (7)
  - Insomnia [None]
  - Pain in extremity [None]
  - Nausea [None]
  - Back pain [None]
  - Hyperhidrosis [None]
  - Haemorrhage [None]
  - Vomiting [None]

NARRATIVE: CASE EVENT DATE: 20170313
